FAERS Safety Report 23700998 (Version 1)
Quarter: 2024Q2

REPORT INFORMATION
  Report Type: Report from Study
  Country: US (occurrence: US)
  Receive Date: 20240403
  Receipt Date: 20240403
  Transmission Date: 20240716
  Serious: Yes (Hospitalization)
  Sender: FDA-Public Use
  Company Number: US-TEVA-VS-3177222

PATIENT
  Age: 45 Year
  Sex: Male
  Weight: 77.27 kg

DRUGS (9)
  1. CLOZAPINE [Suspect]
     Active Substance: CLOZAPINE
     Indication: Schizophrenia
     Dosage: TIME INTERVAL: 0.33333333 DAYS
     Route: 065
     Dates: start: 202305
  2. CLOZAPINE [Suspect]
     Active Substance: CLOZAPINE
     Indication: Schizophrenia
     Dosage: 100 MG IN THE MORNING AND 400 MG AT BEDTIME
     Route: 065
  3. RISPERIDONE [Concomitant]
     Active Substance: RISPERIDONE
  4. OMEPRAZOLE [Concomitant]
     Active Substance: OMEPRAZOLE
  5. VITAMIN D [Concomitant]
     Active Substance: VITAMIN D NOS
  6. MONTELUKAST [Concomitant]
     Active Substance: MONTELUKAST SODIUM
  7. LISINOPRIL [Concomitant]
     Active Substance: LISINOPRIL
  8. ATENOLOL [Concomitant]
     Active Substance: ATENOLOL
  9. VITAMINS [Concomitant]
     Active Substance: VITAMINS

REACTIONS (6)
  - Nausea [Unknown]
  - Vomiting [Unknown]
  - Abdominal distension [Unknown]
  - Gastric ulcer [Unknown]
  - Obstruction gastric [Unknown]
  - Oesophageal wall hypertrophy [Unknown]

NARRATIVE: CASE EVENT DATE: 20240101
